FAERS Safety Report 16479743 (Version 1)
Quarter: 2019Q2

REPORT INFORMATION
  Report Type: Spontaneous
  Country: NL (occurrence: PT)
  Receive Date: 20190626
  Receipt Date: 20190626
  Transmission Date: 20190711
  Serious: Yes (Other)
  Sender: FDA-Public Use
  Company Number: PT-FRESENIUS KABI-FK201906887

PATIENT
  Age: 66 Year
  Sex: Male
  Weight: 70 kg

DRUGS (5)
  1. CARVEDILOL. [Interacting]
     Active Substance: CARVEDILOL
     Indication: VARICES OESOPHAGEAL
     Route: 048
     Dates: start: 20190503
  2. PIPERACILLIN SODIUM/TAZOBACTAM SODIUM [Concomitant]
     Indication: PYREXIA
     Route: 042
     Dates: start: 20190503
  3. FUROSEMIDE (MANUFACTURER UNKNOWN) [Suspect]
     Active Substance: FUROSEMIDE
     Indication: ASCITES
     Route: 042
     Dates: start: 20190503, end: 20190504
  4. SPIRONOLACTONE. [Interacting]
     Active Substance: SPIRONOLACTONE
     Indication: ASCITES
     Route: 048
     Dates: start: 20190503, end: 20190504
  5. ALLOPURINOL. [Concomitant]
     Active Substance: ALLOPURINOL
     Indication: GOUT
     Route: 048

REACTIONS (3)
  - Acute kidney injury [Recovered/Resolved]
  - Hypotension [Recovered/Resolved]
  - Drug interaction [Unknown]

NARRATIVE: CASE EVENT DATE: 20190504
